FAERS Safety Report 15558228 (Version 2)
Quarter: 2019Q1

REPORT INFORMATION
  Report Type: Spontaneous
  Country: IT (occurrence: IT)
  Receive Date: 20181027
  Receipt Date: 20190227
  Transmission Date: 20190417
  Serious: Yes (Disabling)
  Sender: FDA-Public Use
  Company Number: PHHY2018IT136845

PATIENT
  Age: 82 Year
  Sex: Female

DRUGS (1)
  1. ZOMETA [Suspect]
     Active Substance: ZOLEDRONIC ACID
     Indication: PRODUCT USED FOR UNKNOWN INDICATION
     Dosage: 4 MG, UNK
     Route: 041

REACTIONS (4)
  - Abscess oral [Unknown]
  - Osteonecrosis of jaw [Unknown]
  - Purulent discharge [Unknown]
  - Swelling [Unknown]

NARRATIVE: CASE EVENT DATE: 20180401
